FAERS Safety Report 18365914 (Version 1)
Quarter: 2020Q4

REPORT INFORMATION
  Report Type: Spontaneous
  Country: US (occurrence: US)
  Receive Date: 20201009
  Receipt Date: 20201009
  Transmission Date: 20210114
  Serious: Yes (Other)
  Sender: FDA-Public Use
  Company Number: None

PATIENT
  Age: 68 Year
  Sex: Female
  Weight: 58.5 kg

DRUGS (11)
  1. MULTIVITAMIN [Concomitant]
     Active Substance: VITAMINS
  2. SYNTHROID [Concomitant]
     Active Substance: LEVOTHYROXINE SODIUM
  3. MONTELUKAST [Concomitant]
     Active Substance: MONTELUKAST SODIUM
  4. URO-MAG [Concomitant]
  5. BUPROPION HYDROCHLORIDE XL [Suspect]
     Active Substance: BUPROPION HYDROCHLORIDE
     Indication: AGITATION
     Dosage: ?          QUANTITY:1 TABLET(S);?
     Route: 048
     Dates: start: 20200924, end: 20201008
  6. VITAMIN K2 [Concomitant]
     Active Substance: MENAQUINONE 6
  7. VITAMIN B COMPLEX [Concomitant]
     Active Substance: CYANOCOBALAMIN\DEXPANTHENOL\NIACINAMIDE\PYRIDOXINE HYDROCHLORIDE\RIBOFLAVIN 5^-PHOSPHATE SODIUM\THIAMINE HYDROCHLORIDE\VITAMIN B COMPLEX
  8. BUPROPION XL [Concomitant]
     Active Substance: BUPROPION
  9. GLUCOSAMINE [Concomitant]
     Active Substance: GLUCOSAMINE
  10. ATORVASTIN [Concomitant]
     Active Substance: ATORVASTATIN
  11. VITAMIN B6 [Concomitant]
     Active Substance: PYRIDOXINE HYDROCHLORIDE

REACTIONS (9)
  - Muscle tightness [None]
  - Fatigue [None]
  - Poverty of speech [None]
  - Product substitution issue [None]
  - Muscle spasms [None]
  - Anxiety [None]
  - Insomnia [None]
  - Agitation [None]
  - Tachyphrenia [None]

NARRATIVE: CASE EVENT DATE: 20200924
